FAERS Safety Report 7792883-2 (Version None)
Quarter: 2011Q4

REPORT INFORMATION
  Report Type: 
  Country: None (occurrence: None)
  Receive Date: 20111003
  Receipt Date: 20110928
  Transmission Date: 20120403
  Serious: Yes (Hospitalization, Other)
  Sender: FDA-Public Use
  Company Number: US-VERTEX PHARMACEUTICALS INC.-AE-2011-001094

PATIENT
  Sex: Female
  Weight: 81.8 kg

DRUGS (11)
  1. BUPROPION HCL [Concomitant]
     Indication: DEPRESSION
  2. CITALOPRAM HYDROBROMIDE [Concomitant]
     Indication: DEPRESSION
     Route: 048
  3. MIRTAZAPINE [Concomitant]
  4. PROPRANOLOL [Concomitant]
  5. NAPROXEN [Concomitant]
  6. ALBUTEROL [Concomitant]
  7. SPIRIVA [Concomitant]
  8. RIBAVIRIN [Concomitant]
     Indication: HEPATITIS C
     Route: 048
     Dates: start: 20110811
  9. INCIVEK [Suspect]
     Indication: HEPATITIS C
     Route: 048
     Dates: start: 20110811
  10. PEGINTRON [Concomitant]
     Indication: HEPATITIS C
     Route: 058
     Dates: start: 20110811
  11. ATIVAN [Concomitant]
     Indication: ANXIETY
     Route: 048

REACTIONS (4)
  - FATIGUE [None]
  - DYSPNOEA [None]
  - PNEUMONIA [None]
  - ANAEMIA [None]
